FAERS Safety Report 14692338 (Version 1)
Quarter: 2018Q1

REPORT INFORMATION
  Report Type: Spontaneous
  Country: US (occurrence: US)
  Receive Date: 20180329
  Receipt Date: 20180329
  Transmission Date: 20180509
  Serious: No
  Sender: FDA-Public Use
  Company Number: US-ASTRAZENECA-2018SE27714

PATIENT
  Sex: Female

DRUGS (1)
  1. BYDUREON [Suspect]
     Active Substance: EXENATIDE
     Indication: TYPE 2 DIABETES MELLITUS
     Route: 058
     Dates: start: 20160322, end: 20180221

REACTIONS (3)
  - Swelling face [Unknown]
  - Urticaria [Unknown]
  - Dyspnoea [Unknown]

NARRATIVE: CASE EVENT DATE: 20180220
